FAERS Safety Report 12488534 (Version 1)
Quarter: 2016Q2

REPORT INFORMATION
  Report Type: Spontaneous
  Country: GB (occurrence: GB)
  Receive Date: 20160622
  Receipt Date: 20160622
  Transmission Date: 20160815
  Serious: Yes (Other)
  Sender: FDA-Public Use
  Company Number: GB-SA-2016SA110401

PATIENT
  Sex: Female

DRUGS (1)
  1. ALEMTUZUMAB [Suspect]
     Active Substance: ALEMTUZUMAB
     Route: 065

REACTIONS (3)
  - Multiple sclerosis relapse [Unknown]
  - Neoplasm malignant [Unknown]
  - Neck mass [Unknown]
